FAERS Safety Report 25838803 (Version 1)
Quarter: 2025Q3

REPORT INFORMATION
  Report Type: Spontaneous
  Country: IN (occurrence: IN)
  Receive Date: 20250924
  Receipt Date: 20250924
  Transmission Date: 20251021
  Serious: Yes (Other)
  Sender: MARKSANS PHARMA LIMITED
  Company Number: IN-MARKSANS PHARMA LIMITED-MPL202500093

PATIENT

DRUGS (2)
  1. FLUOXETINE HYDROCHLORIDE [Suspect]
     Active Substance: FLUOXETINE HYDROCHLORIDE
     Indication: Obsessive-compulsive disorder
     Route: 048
  2. FLUOXETINE HYDROCHLORIDE [Suspect]
     Active Substance: FLUOXETINE HYDROCHLORIDE
     Route: 048

REACTIONS (5)
  - Hepatic cirrhosis [Recovered/Resolved]
  - Metabolic dysfunction-associated steatohepatitis [Recovered/Resolved]
  - Ascites [Recovered/Resolved]
  - Splenomegaly [Recovered/Resolved]
  - Pleural effusion [Recovered/Resolved]
